FAERS Safety Report 8508388-7 (Version None)
Quarter: 2012Q3

REPORT INFORMATION
  Report Type: 
  Country: None (occurrence: None)
  Receive Date: 20120713
  Receipt Date: 20120710
  Transmission Date: 20120928
  Serious: Yes (Other)
  Sender: FDA-Public Use
  Company Number: PHHY2011CA32623

PATIENT
  Sex: Female

DRUGS (5)
  1. ZOLEDRONOC ACID [Suspect]
     Indication: OSTEOPOROSIS
     Dosage: 5 MG, YERALY
     Route: 042
     Dates: start: 20091130
  2. ZOLEDRONOC ACID [Suspect]
     Dosage: 5 MG, YERALY
     Route: 042
     Dates: start: 20101130
  3. ZOLEDRONOC ACID [Suspect]
     Dosage: 5 MG,YEARLY
     Route: 042
     Dates: start: 20111213
  4. CALCIUM [Concomitant]
  5. VITAMIN D [Concomitant]

REACTIONS (3)
  - TINNITUS [None]
  - WRIST FRACTURE [None]
  - FALL [None]
